FAERS Safety Report 10072266 (Version 1)
Quarter: 2014Q2

REPORT INFORMATION
  Report Type: Spontaneous
  Country: US (occurrence: US)
  Receive Date: 20140411
  Receipt Date: 20140411
  Transmission Date: 20141212
  Serious: Yes (Other)
  Sender: FDA-Public Use
  Company Number: US-GLENMARK GENERICS (EUROPE) LTD-2014GMK008279

PATIENT
  Age: 68 Year
  Sex: Male

DRUGS (2)
  1. GABAPENTIN [Suspect]
     Indication: HYPOAESTHESIA
     Dosage: 300 MG, HS
  2. VITAMIN B12                        /00056201/ [Concomitant]
     Indication: VITAMIN B12 DEFICIENCY
     Dosage: UNK

REACTIONS (7)
  - Asterixis [Recovered/Resolved]
  - Slow response to stimuli [Unknown]
  - Hypotonia [Unknown]
  - Neurotoxicity [Unknown]
  - Dyskinesia [Unknown]
  - Areflexia [Unknown]
  - Myoclonus [Unknown]
